FAERS Safety Report 5988182-1 (Version None)
Quarter: 2008Q4

REPORT INFORMATION
  Report Type: 
  Country: None (occurrence: None)
  Receive Date: 20081203
  Receipt Date: 20081122
  Transmission Date: 20090506
  Serious: Yes (Hospitalization)
  Sender: FDA-Public Use
  Company Number: JPI-P-005326

PATIENT
  Age: 69 Year
  Sex: Male

DRUGS (7)
  1. LUVOX [Suspect]
     Indication: DRUG USE FOR UNKNOWN INDICATION
     Dosage: 150 MG, 1 D, ORAL
     Route: 048
     Dates: start: 20081104, end: 20081101
  2. ITOPRIDE HYDROCHLORIDE [Concomitant]
  3. ALPRAZOLAM [Concomitant]
  4. FLUDIAZEPAM [Concomitant]
  5. TRIAZOLAM [Concomitant]
  6. RABEPRAZOLE SODIUM [Concomitant]
  7. RIKKUNSHI-TO [Concomitant]

REACTIONS (1)
  - INTERSTITIAL LUNG DISEASE [None]
